FAERS Safety Report 19191117 (Version 1)
Quarter: 2021Q2

REPORT INFORMATION
  Report Type: Spontaneous
  Country: US (occurrence: US)
  Receive Date: 20210429
  Receipt Date: 20210429
  Transmission Date: 20210717
  Serious: No
  Sender: FDA-Public Use
  Company Number: US-SA-2021SA128187

PATIENT
  Age: 64 Year
  Sex: Female

DRUGS (1)
  1. LANTUS SOLOSTAR [Suspect]
     Active Substance: INSULIN GLARGINE
     Indication: DIABETES MELLITUS
     Dosage: 48 IU, QD
     Route: 065
     Dates: start: 20210415

REACTIONS (2)
  - Product packaging quantity issue [Unknown]
  - Product storage error [Unknown]

NARRATIVE: CASE EVENT DATE: 20210415
